FAERS Safety Report 11090547 (Version 1)
Quarter: 2015Q2

REPORT INFORMATION
  Report Type: Report from Study
  Country: BR (occurrence: BR)
  Receive Date: 20150505
  Receipt Date: 20150505
  Transmission Date: 20150821
  Serious: Yes (Other)
  Sender: FDA-Public Use
  Company Number: PHHY2015BR037915

PATIENT
  Sex: Male
  Weight: 130 kg

DRUGS (3)
  1. DIOVAN [Suspect]
     Active Substance: VALSARTAN
     Indication: HYPERTENSION
     Dosage: 80 MG, QD (IN THE MORNING)
     Route: 048
     Dates: start: 2009
  2. DIOVAN [Suspect]
     Active Substance: VALSARTAN
     Dosage: 2 DF (80 MG), QD
     Route: 048
     Dates: end: 20150326
  3. DIOVAN AMLO [Suspect]
     Active Substance: AMLODIPINE\VALSARTAN
     Indication: HYPERTENSION
     Dosage: 1 DF, QD
     Route: 048

REACTIONS (5)
  - Drug ineffective [Not Recovered/Not Resolved]
  - Blood pressure increased [Not Recovered/Not Resolved]
  - Malaise [Recovering/Resolving]
  - Blood pressure fluctuation [Not Recovered/Not Resolved]
  - Dizziness [Recovering/Resolving]
